FAERS Safety Report 7680347-6 (Version None)
Quarter: 2011Q3

REPORT INFORMATION
  Report Type: 
  Country: None (occurrence: None)
  Receive Date: 20110812
  Receipt Date: 20110805
  Transmission Date: 20111222
  Serious: Yes (Life-Threatening)
  Sender: FDA-Public Use
  Company Number: JP-GLAXOSMITHKLINE-B0724776A

PATIENT
  Sex: Male
  Weight: 58 kg

DRUGS (12)
  1. SERETIDE (50MCG/250MCG) [Suspect]
     Indication: EMPHYSEMA
     Dosage: 500MCG PER DAY
     Route: 055
     Dates: start: 20090907, end: 20100918
  2. ATARAX [Concomitant]
     Indication: PRURITUS
     Dosage: 100MG PER DAY
     Route: 048
     Dates: start: 20100517, end: 20100918
  3. NEUTROPIN [Concomitant]
     Indication: MUSCULOSKELETAL PAIN
     Dosage: 8IU PER DAY
     Route: 048
     Dates: start: 20091126, end: 20100918
  4. UNIPHYL [Concomitant]
     Indication: EMPHYSEMA
     Dosage: 400MG PER DAY
     Route: 048
     Dates: end: 20100918
  5. EPINASTINE HYDROCHLORIDE [Concomitant]
     Indication: PRURITUS
     Dosage: 20MG PER DAY
     Route: 048
     Dates: start: 20100308, end: 20100918
  6. OLOPATADINE HCL [Concomitant]
     Indication: PRURITUS
     Dosage: 10MG PER DAY
     Route: 048
     Dates: start: 20091013, end: 20100918
  7. RESTAMIN [Concomitant]
     Indication: PRURITUS
     Route: 061
     Dates: start: 20091013
  8. CLEANAL [Concomitant]
     Indication: EMPHYSEMA
     Dosage: 800MG PER DAY
     Route: 048
     Dates: end: 20100918
  9. PURSENNID [Concomitant]
     Indication: PRURITUS
     Dosage: 12MG PER DAY
     Route: 048
     Dates: start: 20100208, end: 20100918
  10. SPIRIVA [Concomitant]
     Indication: EMPHYSEMA
     Dosage: 18MCG PER DAY
     Route: 055
     Dates: end: 20100918
  11. MUCOSOLVAN [Concomitant]
     Indication: EMPHYSEMA
     Dosage: 30MG PER DAY
     Route: 048
     Dates: end: 20100918
  12. HIRUDOID [Concomitant]
     Indication: PRURITUS
     Route: 061
     Dates: start: 20091013

REACTIONS (2)
  - METASTASES TO BONE [None]
  - PROSTATE CANCER [None]
